FAERS Safety Report 5809961-7 (Version None)
Quarter: 2008Q3

REPORT INFORMATION
  Report Type: 
  Country: None (occurrence: None)
  Receive Date: 20080714
  Receipt Date: 20080714
  Transmission Date: 20090109
  Serious: Yes (Other)
  Sender: FDA-Public Use
  Company Number: None

PATIENT
  Age: 90 Year
  Sex: Female
  Weight: 68.0396 kg

DRUGS (1)
  1. LEVAQUIN [Suspect]
     Indication: KIDNEY INFECTION
     Dosage: 1 PER DAY
     Dates: start: 20080618, end: 20080622

REACTIONS (3)
  - ABASIA [None]
  - MOVEMENT DISORDER [None]
  - PAIN IN EXTREMITY [None]
